FAERS Safety Report 5678223-3 (Version None)
Quarter: 2008Q1

REPORT INFORMATION
  Report Type: 
  Country: None (occurrence: None)
  Receive Date: 20080324
  Receipt Date: 20080324
  Transmission Date: 20080703
  Serious: Yes (Hospitalization)
  Sender: FDA-Public Use
  Company Number: None

PATIENT
  Age: 63 Year
  Sex: Male
  Weight: 107.5 kg

DRUGS (1)
  1. FUROSEMIDE [Suspect]
     Indication: HYPERTENSION
     Dosage: 40MG  EVERY DAY  PO
     Route: 048
     Dates: start: 20080122, end: 20080320

REACTIONS (2)
  - HYPOKALAEMIA [None]
  - HYPOMAGNESAEMIA [None]
